FAERS Safety Report 6889987-5 (Version None)
Quarter: 2010Q3

REPORT INFORMATION
  Report Type: 
  Country: None (occurrence: None)
  Receive Date: 20100730
  Receipt Date: 20080625
  Transmission Date: 20110219
  Serious: No
  Sender: FDA-Public Use
  Company Number: US-PFIZER INC-2008047477

PATIENT
  Sex: Female
  Weight: 70.454 kg

DRUGS (3)
  1. LIPITOR [Suspect]
     Indication: BLOOD CHOLESTEROL INCREASED
     Dates: start: 20080101
  2. CARDIOVASCULAR SYSTEM DRUGS [Concomitant]
  3. ANASTROZOLE [Concomitant]
     Dates: end: 20080401

REACTIONS (4)
  - DRUG DOSE OMISSION [None]
  - HEADACHE [None]
  - MIGRAINE [None]
  - URINARY TRACT INFECTION [None]
